FAERS Safety Report 18865793 (Version 2)
Quarter: 2021Q1

REPORT INFORMATION
  Report Type: Spontaneous
  Country: US (occurrence: US)
  Receive Date: 20210208
  Receipt Date: 20210211
  Transmission Date: 20210420
  Serious: Yes (Other)
  Sender: FDA-Public Use
  Company Number: US-PFIZER INC-2020394415

PATIENT
  Age: 72 Year
  Sex: Female
  Weight: 46.72 kg

DRUGS (2)
  1. XELJANZ XR [Suspect]
     Active Substance: TOFACITINIB CITRATE
     Indication: RHEUMATOID ARTHRITIS
     Dosage: 11 MG, 1X/DAY
     Route: 048
  2. METHOTREXATE. [Suspect]
     Active Substance: METHOTREXATE
     Dosage: UNK (2.5 MG)

REACTIONS (12)
  - Abdominal pain upper [Unknown]
  - Asthenia [Unknown]
  - Body temperature abnormal [Unknown]
  - Red blood cell sedimentation rate increased [Unknown]
  - Haemoglobin abnormal [Unknown]
  - Nausea [Unknown]
  - Gait disturbance [Unknown]
  - Dysstasia [Unknown]
  - Drug hypersensitivity [Unknown]
  - Syncope [Unknown]
  - Bedridden [Unknown]
  - Blood bilirubin abnormal [Unknown]

NARRATIVE: CASE EVENT DATE: 20210117
